FAERS Safety Report 9695960 (Version 1)
Quarter: 2013Q4

REPORT INFORMATION
  Report Type: Spontaneous
  Country: US (occurrence: US)
  Receive Date: 20131119
  Receipt Date: 20131119
  Transmission Date: 20140711
  Serious: No
  Sender: FDA-Public Use
  Company Number: US-BAYER-2013-141148

PATIENT
  Age: 30 Year
  Sex: Female
  Weight: 84 kg

DRUGS (2)
  1. ALEVE CAPLET [Suspect]
     Indication: DYSMENORRHOEA
     Dosage: 2 DF, PRN
     Route: 048
  2. ALEVE CAPLET [Suspect]
     Indication: DYSMENORRHOEA
     Dosage: 4 DF, UNK
     Route: 048
     Dates: start: 20131115, end: 20131115

REACTIONS (1)
  - Extra dose administered [None]
